FAERS Safety Report 22635981 (Version 1)
Quarter: 2023Q2

REPORT INFORMATION
  Report Type: Spontaneous
  Country: US (occurrence: None)
  Receive Date: 20230621
  Receipt Date: 20230621
  Transmission Date: 20230721
  Serious: No
  Sender: FDA-Public Use
  Company Number: None

PATIENT
  Age: 72 Year
  Weight: 192 kg

DRUGS (19)
  1. ABIRATERONE [Suspect]
     Active Substance: ABIRATERONE
     Indication: Prostate cancer
     Dosage: FREQUENCY : DAILY;?
     Route: 048
     Dates: start: 20220919, end: 20230527
  2. TRESIBA [Concomitant]
     Active Substance: INSULIN DEGLUDEC
  3. NOVOLOG [Concomitant]
     Active Substance: INSULIN ASPART
  4. JARDIANCE [Concomitant]
     Active Substance: EMPAGLIFLOZIN
  5. COUMADIN [Concomitant]
     Active Substance: WARFARIN SODIUM
  6. METOPROLOL [Concomitant]
     Active Substance: METOPROLOL
  7. VENLAFAXINE [Concomitant]
     Active Substance: VENLAFAXINE HYDROCHLORIDE
  8. LORAZEPAM [Concomitant]
     Active Substance: LORAZEPAM
  9. BUPROPION [Concomitant]
     Active Substance: BUPROPION
  10. ROSUVASTATIN [Concomitant]
     Active Substance: ROSUVASTATIN
  11. TRESIBA [Concomitant]
     Active Substance: INSULIN DEGLUDEC
  12. NOVOLOG [Concomitant]
     Active Substance: INSULIN ASPART
  13. JARDIANCE [Concomitant]
     Active Substance: EMPAGLIFLOZIN
  14. COUMADIN [Concomitant]
     Active Substance: WARFARIN SODIUM
  15. METOPROLOL TARTRATE [Concomitant]
     Active Substance: METOPROLOL TARTRATE
  16. VENLAFAXINE [Concomitant]
     Active Substance: VENLAFAXINE HYDROCHLORIDE
  17. LORAZEPAM [Concomitant]
     Active Substance: LORAZEPAM
  18. BUPROPION [Concomitant]
     Active Substance: BUPROPION
  19. ROSUVASTATIN [Concomitant]
     Active Substance: ROSUVASTATIN

REACTIONS (1)
  - Death [None]

NARRATIVE: CASE EVENT DATE: 20230527
